FAERS Safety Report 4675455-8 (Version None)
Quarter: 2005Q2

REPORT INFORMATION
  Report Type: 
  Country: None (occurrence: None)
  Receive Date: 20050527
  Receipt Date: 20050314
  Transmission Date: 20051028
  Serious: No
  Sender: FDA-Public Use
  Company Number: US-BRISTOL-MYERS SQUIBB COMPANY-12895868

PATIENT
  Age: 41 Year
  Sex: Female
  Weight: 68 kg

DRUGS (15)
  1. ABILIFY [Suspect]
  2. ZELNORM [Concomitant]
  3. WELLBUTRIN XL [Concomitant]
  4. ATENOLOL [Concomitant]
  5. TOPAMAX [Concomitant]
  6. SEPTRA [Concomitant]
  7. LEXAPRO [Concomitant]
  8. NEXIUM [Concomitant]
  9. SYNTHROID [Concomitant]
  10. TRILEPTAL [Concomitant]
  11. DOSTINEX [Concomitant]
  12. LISINOPRIL [Concomitant]
  13. SEROQUEL [Concomitant]
  14. VIRAMUNE [Concomitant]
  15. TRUVADA [Concomitant]

REACTIONS (1)
  - BLOOD GLUCOSE INCREASED [None]
